FAERS Safety Report 12544878 (Version 1)
Quarter: 2016Q3

REPORT INFORMATION
  Report Type: Spontaneous
  Country: PK (occurrence: US)
  Receive Date: 20160711
  Receipt Date: 20160711
  Transmission Date: 20161109
  Serious: Yes (Hospitalization)
  Sender: FDA-Public Use
  Company Number: PK-JNJFOC-20160704234

PATIENT
  Age: 27 Year
  Sex: Female

DRUGS (4)
  1. LEVOTHYROXINE. [Concomitant]
     Active Substance: LEVOTHYROXINE
     Indication: HYPOTHYROIDISM
     Route: 048
  2. CANAGLIFLOZIN [Suspect]
     Active Substance: CANAGLIFLOZIN
     Indication: TYPE 1 DIABETES MELLITUS
     Dosage: DRUG WAS STARTED APPROXIMATELY 8 MONTHS AGO (AT THE TIME OF THE REPORT)
     Route: 065
  3. DESVENLAFAXINE. [Concomitant]
     Active Substance: DESVENLAFAXINE
     Indication: DEPRESSION
     Route: 048
  4. INSULIN [Concomitant]
     Active Substance: INSULIN NOS
     Dosage: REQUIREMENT WENT DOWN
     Route: 065

REACTIONS (3)
  - Off label use [Unknown]
  - Diabetic ketoacidosis [Recovered/Resolved]
  - Product use issue [Unknown]
